FAERS Safety Report 21581231 (Version 11)
Quarter: 2025Q3

REPORT INFORMATION
  Report Type: Report from Study
  Country: CA (occurrence: CA)
  Receive Date: 20221111
  Receipt Date: 20250707
  Transmission Date: 20251021
  Serious: Yes (Other)
  Sender: ROCHE
  Company Number: CA-ROCHE-3212865

PATIENT
  Age: 4 Year
  Sex: Male
  Weight: 36 kg

DRUGS (32)
  1. ACTEMRA [Suspect]
     Active Substance: TOCILIZUMAB
     Indication: Transplant rejection
     Dosage: DRUG DOSE FIRST ADMINISTERED IS 170 MG MILLIGRAM(S)
     Route: 042
     Dates: start: 20201029, end: 20201207
  2. ACTEMRA [Suspect]
     Active Substance: TOCILIZUMAB
     Dosage: DRUG DOSE FIRST ADMINISTERED IS 130 MG MILLIGRAM(S)
     Route: 042
     Dates: start: 20210112, end: 20210112
  3. ACTEMRA [Suspect]
     Active Substance: TOCILIZUMAB
     Dosage: DRUG DOSE FIRST ADMINISTERED IS 170 MG MILLIGRAM(S)
     Route: 042
     Dates: start: 20210208, end: 20210208
  4. ACTEMRA [Suspect]
     Active Substance: TOCILIZUMAB
     Route: 042
     Dates: start: 20210308, end: 20210308
  5. ACTEMRA [Suspect]
     Active Substance: TOCILIZUMAB
     Dosage: DRUG DOSE FIRST ADMINISTERED IS 170 MG MILLIGRAM(S)
     Route: 042
     Dates: start: 20210408
  6. ACTEMRA [Suspect]
     Active Substance: TOCILIZUMAB
     Dosage: DRUG DOSE FIRST ADMINISTERED IS 200 MG MILLIGRAM(S)
     Route: 042
     Dates: start: 20211019, end: 20221005
  7. ACTEMRA [Suspect]
     Active Substance: TOCILIZUMAB
     Dosage: DRUG DOSE FIRST ADMINISTERED IS 220 MG MILLIGRAM(S)?MOREDOSAGEINFO IS B5006B12 31-JUL-2024
     Route: 042
     Dates: start: 20221102, end: 20231010
  8. ACTEMRA [Suspect]
     Active Substance: TOCILIZUMAB
     Route: 042
  9. ACTEMRA [Suspect]
     Active Substance: TOCILIZUMAB
     Route: 042
  10. ACTEMRA [Suspect]
     Active Substance: TOCILIZUMAB
     Route: 042
  11. ACTEMRA [Suspect]
     Active Substance: TOCILIZUMAB
     Route: 042
  12. ACTEMRA [Suspect]
     Active Substance: TOCILIZUMAB
     Route: 042
     Dates: start: 20231107, end: 20240529
  13. ACTEMRA [Suspect]
     Active Substance: TOCILIZUMAB
     Route: 042
     Dates: start: 20240626
  14. ACTEMRA [Suspect]
     Active Substance: TOCILIZUMAB
     Route: 042
  15. ACTEMRA [Suspect]
     Active Substance: TOCILIZUMAB
     Route: 042
  16. ACTEMRA [Suspect]
     Active Substance: TOCILIZUMAB
     Route: 042
  17. ACTEMRA [Suspect]
     Active Substance: TOCILIZUMAB
     Route: 042
  18. ACTEMRA [Suspect]
     Active Substance: TOCILIZUMAB
     Route: 042
  19. ACTEMRA [Suspect]
     Active Substance: TOCILIZUMAB
     Route: 042
  20. ACTEMRA [Suspect]
     Active Substance: TOCILIZUMAB
     Route: 042
  21. ACTEMRA [Suspect]
     Active Substance: TOCILIZUMAB
     Route: 042
  22. ACTEMRA [Suspect]
     Active Substance: TOCILIZUMAB
     Route: 042
  23. CELLCEPT [Suspect]
     Active Substance: MYCOPHENOLATE MOFETIL
     Indication: Product used for unknown indication
     Route: 065
  24. AMLODIPINE [Concomitant]
     Active Substance: AMLODIPINE BESYLATE
     Route: 065
  25. FAMOTIDINE [Concomitant]
     Active Substance: FAMOTIDINE
     Route: 065
  26. FERROUS SULFATE [Concomitant]
     Active Substance: FERROUS SULFATE
     Route: 065
  27. MAGNESIUM [Concomitant]
     Active Substance: MAGNESIUM
  28. PREDNISONE [Concomitant]
     Active Substance: PREDNISONE
  29. SEPTRA [Concomitant]
     Active Substance: SULFAMETHOXAZOLE\TRIMETHOPRIM
  30. TACROLIMUS [Concomitant]
     Active Substance: TACROLIMUS
  31. VALCYTE [Concomitant]
     Active Substance: VALGANCICLOVIR HYDROCHLORIDE
  32. EMLA [Concomitant]
     Active Substance: LIDOCAINE\PRILOCAINE

REACTIONS (7)
  - Weight increased [Unknown]
  - Weight increased [Unknown]
  - Oxygen saturation decreased [Unknown]
  - Gastroenteritis [Recovered/Resolved]
  - Heart rate increased [Unknown]
  - Catheter site pain [Unknown]
  - Vascular access site haemorrhage [Unknown]

NARRATIVE: CASE EVENT DATE: 20220101
